FAERS Safety Report 15391855 (Version 2)
Quarter: 2018Q3

REPORT INFORMATION
  Report Type: Report from Study
  Country: US (occurrence: US)
  Receive Date: 20180917
  Receipt Date: 20180918
  Transmission Date: 20181010
  Serious: Yes (Other)
  Sender: FDA-Public Use
  Company Number: US-PFIZER INC-2018369522

PATIENT
  Age: 54 Year
  Sex: Female

DRUGS (1)
  1. PACLITAXEL. [Suspect]
     Active Substance: PACLITAXEL
     Indication: OVARIAN EPITHELIAL CANCER
     Dosage: 135 MG/M2, CYCLIC (CYCLE OF PACLITAXEL 1)

REACTIONS (1)
  - Gastrointestinal necrosis [Recovering/Resolving]
